FAERS Safety Report 4552096-4 (Version None)
Quarter: 2005Q1

REPORT INFORMATION
  Report Type: 
  Country: None (occurrence: None)
  Receive Date: 20050113
  Receipt Date: 20050107
  Transmission Date: 20050727
  Serious: Yes (Other)
  Sender: FDA-Public Use
  Company Number: JP-MERCK-0501USA00914

PATIENT
  Age: 50 Year
  Sex: Female

DRUGS (7)
  1. [THERAPY UNSPECIFIED] [Concomitant]
     Route: 041
  2. PRIMAXIN [Suspect]
     Route: 041
     Dates: start: 20050105
  3. NITROGLYCERIN [Concomitant]
     Route: 051
     Dates: start: 20050104
  4. FOY [Concomitant]
     Indication: HAEMODIALYSIS
     Route: 051
     Dates: start: 20050105
  5. INOVAN [Concomitant]
     Route: 041
  6. NICARDIPINE HCL [Concomitant]
     Route: 065
  7. LASIX [Concomitant]
     Route: 065

REACTIONS (1)
  - PUPILS UNEQUAL [None]
